FAERS Safety Report 17982114 (Version 1)
Quarter: 2020Q3

REPORT INFORMATION
  Report Type: Report from Study
  Country: US (occurrence: US)
  Receive Date: 20200706
  Receipt Date: 20200706
  Transmission Date: 20201103
  Serious: No
  Sender: FDA-Public Use
  Company Number: NVSC2020US185882

PATIENT
  Sex: Male

DRUGS (3)
  1. COREG [Suspect]
     Active Substance: CARVEDILOL
     Indication: PRODUCT USED FOR UNKNOWN INDICATION
     Dosage: 12.5 MG, BID
     Route: 065
  2. ENTRESTO [Suspect]
     Active Substance: SACUBITRIL\VALSARTAN
     Indication: PRODUCT USED FOR UNKNOWN INDICATION
     Dosage: 1 DF, BID, 24?26
     Route: 048
  3. ENTRESTO [Suspect]
     Active Substance: SACUBITRIL\VALSARTAN
     Dosage: 2 DF, BID, 24?26
     Route: 048
     Dates: start: 20200608

REACTIONS (7)
  - Feeling abnormal [Unknown]
  - Swollen tongue [Unknown]
  - Infection [Unknown]
  - Visual impairment [Unknown]
  - Dehydration [Unknown]
  - Headache [Unknown]
  - Diarrhoea [Unknown]
